FAERS Safety Report 18598705 (Version 1)
Quarter: 2020Q4

REPORT INFORMATION
  Report Type: Other
  Country: US (occurrence: US)
  Receive Date: 20201210
  Receipt Date: 20201210
  Transmission Date: 20210114
  Serious: Yes (Disabling)
  Sender: FDA-Public Use
  Company Number: US-ROCHE-2702415

PATIENT
  Age: 29 Year
  Sex: Female
  Weight: 109.87 kg

DRUGS (8)
  1. ESCITALOPRAM [Concomitant]
     Active Substance: ESCITALOPRAM OXALATE
     Indication: DEPRESSION
     Route: 048
     Dates: start: 2019
  2. ESCITALOPRAM [Concomitant]
     Active Substance: ESCITALOPRAM OXALATE
     Indication: ANXIETY
  3. IMITREX [Concomitant]
     Active Substance: SUMATRIPTAN SUCCINATE
  4. VIT D [Concomitant]
     Active Substance: VITAMIN D NOS
     Dosage: 50000 UNITS ONE TIME PER WEEK FOR FOUR WEEKS
  5. TOPAMAX [Concomitant]
     Active Substance: TOPIRAMATE
  6. OCREVUS [Suspect]
     Active Substance: OCRELIZUMAB
     Indication: PROGRESSIVE MULTIPLE SCLEROSIS
     Dosage: PRESCRIBED 300 MG X 2 ?ON 24/AUG/2020, RECEIVED OCRELIZUMAB OF AN UNKNOWN DOSAGE FORM.
     Route: 042
     Dates: start: 20200128
  7. LEXAPRO [Concomitant]
     Active Substance: ESCITALOPRAM OXALATE
  8. OCREVUS [Suspect]
     Active Substance: OCRELIZUMAB
     Dosage: 300 MG ONCE PER TWO WEEK
     Route: 042
     Dates: start: 20200909

REACTIONS (6)
  - Oral discomfort [Recovered/Resolved]
  - Oropharyngeal discomfort [Recovered/Resolved]
  - Oropharyngeal discomfort [Recovered/Resolved]
  - Oral discomfort [Recovered/Resolved]
  - Heart rate increased [Recovered/Resolved]
  - Flushing [Recovered/Resolved]

NARRATIVE: CASE EVENT DATE: 202008
